FAERS Safety Report 19271344 (Version 2)
Quarter: 2021Q2

REPORT INFORMATION
  Report Type: Other
  Country: US (occurrence: US)
  Receive Date: 20210518
  Receipt Date: 20210601
  Transmission Date: 20210717
  Serious: Yes (Hospitalization)
  Sender: FDA-Public Use
  Company Number: US-ROCHE-2830453

PATIENT
  Sex: Male

DRUGS (1)
  1. NUTROPIN [Suspect]
     Active Substance: SOMATROPIN
     Indication: CHRONIC KIDNEY DISEASE
     Route: 058

REACTIONS (8)
  - Pain [Unknown]
  - Insomnia [Unknown]
  - Pyrexia [Unknown]
  - Back pain [Unknown]
  - Dehydration [Unknown]
  - Neck pain [Unknown]
  - Heart rate increased [Unknown]
  - Headache [Unknown]
